FAERS Safety Report 14509375 (Version 1)
Quarter: 2018Q1

REPORT INFORMATION
  Report Type: Other
  Country: FI (occurrence: FI)
  Receive Date: 20180209
  Receipt Date: 20180209
  Transmission Date: 20180509
  Serious: Yes (Life-Threatening)
  Sender: FDA-Public Use
  Company Number: FI-ASTELLAS-2018US007222

PATIENT
  Age: 64 Year
  Sex: Male

DRUGS (2)
  1. MIRABEGRON [Suspect]
     Active Substance: MIRABEGRON
     Indication: POLLAKIURIA
     Route: 048
     Dates: start: 20171206, end: 20171220
  2. RHINOCORT                          /00212602/ [Concomitant]
     Indication: NASAL POLYPS
     Route: 045

REACTIONS (9)
  - Dysphonia [Recovered/Resolved]
  - C-reactive protein increased [Recovered/Resolved]
  - Pharyngeal oedema [Recovered/Resolved]
  - Throat irritation [Recovered/Resolved]
  - Oropharyngeal pain [Recovered/Resolved]
  - Cellulitis [Recovered/Resolved]
  - Angioedema [Recovered/Resolved]
  - Oedema peripheral [Recovered/Resolved]
  - Swelling face [Recovered/Resolved]

NARRATIVE: CASE EVENT DATE: 201712
